FAERS Safety Report 23787875 (Version 2)
Quarter: 2024Q2

REPORT INFORMATION
  Report Type: Report from Study
  Country: CA (occurrence: CA)
  Receive Date: 20240426
  Receipt Date: 20240505
  Transmission Date: 20240716
  Serious: Yes (Other)
  Sender: FDA-Public Use
  Company Number: CA-JNJFOC-20240474494

PATIENT
  Age: 18 Year
  Sex: Female

DRUGS (2)
  1. REMICADE [Suspect]
     Active Substance: INFLIXIMAB
     Indication: Crohn^s disease
     Route: 041
  2. REMICADE [Suspect]
     Active Substance: INFLIXIMAB
     Route: 041
     Dates: start: 20210908

REACTIONS (3)
  - Intestinal stenosis [Not Recovered/Not Resolved]
  - Bronchitis [Recovering/Resolving]
  - Gastrointestinal scarring [Not Recovered/Not Resolved]

NARRATIVE: CASE EVENT DATE: 20240401
